FAERS Safety Report 7352549-X (Version None)
Quarter: 2011Q1

REPORT INFORMATION
  Report Type: 
  Country: None (occurrence: None)
  Receive Date: 20110310
  Receipt Date: 20110310
  Transmission Date: 20110831
  Serious: Yes (Hospitalization)
  Sender: FDA-Public Use
  Company Number: None

PATIENT
  Age: 86 Year
  Sex: Male
  Weight: 81.2 kg

DRUGS (3)
  1. ASPIRIN [Suspect]
     Indication: CORONARY ARTERY DISEASE
     Dosage: 325 MG DAILY PO
     Route: 048
     Dates: start: 20110204, end: 20110218
  2. ASPIRIN [Suspect]
     Indication: ISCHAEMIC STROKE
     Dosage: 325 MG DAILY PO
     Route: 048
     Dates: start: 20110204, end: 20110218
  3. PRADAXA [Suspect]
     Indication: ATRIAL FIBRILLATION
     Dosage: 150 MG BID PO
     Route: 048
     Dates: start: 20110212, end: 20110213

REACTIONS (3)
  - HAEMOGLOBIN DECREASED [None]
  - POST PROCEDURAL HAEMORRHAGE [None]
  - ISCHAEMIC STROKE [None]
